FAERS Safety Report 5391445-4 (Version None)
Quarter: 2007Q3

REPORT INFORMATION
  Report Type: 
  Country: None (occurrence: None)
  Receive Date: 20070719
  Receipt Date: 20070713
  Transmission Date: 20080115
  Serious: Yes (Other)
  Sender: FDA-Public Use
  Company Number: BR-JNJFOC-20070703401

PATIENT
  Age: 88 Year
  Sex: Male
  Weight: 76 kg

DRUGS (4)
  1. TYLENOL (CAPLET) [Suspect]
     Indication: PYREXIA
  2. TYLENOL (CAPLET) [Suspect]
     Indication: ANALGESIA
  3. BETASERC [Concomitant]
     Indication: LABYRINTHITIS
  4. VITERGAN [Concomitant]
     Indication: VITAMIN SUPPLEMENTATION

REACTIONS (1)
  - EYE HAEMORRHAGE [None]
